FAERS Safety Report 9218176 (Version 1)
Quarter: 2013Q2

REPORT INFORMATION
  Report Type: Spontaneous
  Country: FR (occurrence: FR)
  Receive Date: 20130408
  Receipt Date: 20130408
  Transmission Date: 20140414
  Serious: Yes (Other)
  Sender: FDA-Public Use
  Company Number: PHHY2013FR032158

PATIENT
  Age: 5 Year
  Sex: 0

DRUGS (5)
  1. ONCOVIN [Suspect]
     Indication: ACUTE LYMPHOCYTIC LEUKAEMIA
  2. METHOTREXATE [Suspect]
     Indication: ACUTE LYMPHOCYTIC LEUKAEMIA
     Route: 048
  3. METHOTREXATE [Suspect]
     Route: 037
  4. DEXAMETHASONE [Suspect]
     Indication: ACUTE LYMPHOCYTIC LEUKAEMIA
     Dosage: UNK
  5. PURINETHOL [Suspect]
     Indication: ACUTE LYMPHOCYTIC LEUKAEMIA
     Route: 048

REACTIONS (5)
  - Molluscum contagiosum [Recovering/Resolving]
  - Superinfection [Recovered/Resolved]
  - Pruritus [Unknown]
  - Skin lesion [Recovered/Resolved]
  - Lymphopenia [Recovered/Resolved]
